FAERS Safety Report 5718974-5 (Version None)
Quarter: 2008Q2

REPORT INFORMATION
  Report Type: 
  Country: None (occurrence: None)
  Receive Date: 20080423
  Receipt Date: 20080408
  Transmission Date: 20081010
  Serious: Yes (Life-Threatening)
  Sender: FDA-Public Use
  Company Number: 2008EU000324

PATIENT
  Age: 12 Year
  Sex: Male
  Weight: 45 kg

DRUGS (5)
  1. PROTOPIC [Suspect]
     Indication: DERMATITIS ATOPIC
     Dosage: 0.3 %, BID, TOPICAL; 0.3 %, BID, TOPICAL
     Route: 061
     Dates: start: 20031118, end: 20040101
  2. PROTOPIC [Suspect]
     Indication: DERMATITIS ATOPIC
     Dosage: 0.3 %, BID, TOPICAL; 0.3 %, BID, TOPICAL
     Route: 061
     Dates: start: 20040805, end: 20050912
  3. HYDROXYZINE [Concomitant]
  4. EMOLLIENTS AND PROTECTIVES [Concomitant]
  5. CORTICOSTEROIDS, DERMATOLOGICAL PREPARATIONS [Concomitant]

REACTIONS (8)
  - B-CELL LYMPHOMA [None]
  - CONDITION AGGRAVATED [None]
  - DERMATITIS ATOPIC [None]
  - INFLUENZA LIKE ILLNESS [None]
  - MYCOSIS FUNGOIDES [None]
  - POIKILODERMA [None]
  - TOOTH EXTRACTION [None]
  - UPPER LIMB FRACTURE [None]
